FAERS Safety Report 5679882-1 (Version None)
Quarter: 2008Q1

REPORT INFORMATION
  Report Type: 
  Country: None (occurrence: None)
  Receive Date: 20080321
  Receipt Date: 20080220
  Transmission Date: 20080703
  Serious: Yes (Hospitalization)
  Sender: FDA-Public Use
  Company Number: 2008S1002873

PATIENT
  Age: 37 Year
  Sex: Male

DRUGS (3)
  1. BACLOFEN [Suspect]
     Dosage: 80 MG; ONCE ORAL, 80 MG; ORAL; ONCE
     Route: 048
  2. ACETAMINOPHEN [Suspect]
     Dosage: ORAL, ORAL
     Route: 048
  3. CODEINE SUL TAB [Suspect]
     Dosage: ORAL, ORAL
     Route: 048

REACTIONS (3)
  - DEPRESSED LEVEL OF CONSCIOUSNESS [None]
  - OVERDOSE [None]
  - THERAPEUTIC AGENT TOXICITY [None]
